FAERS Safety Report 6370681-4 (Version None)
Quarter: 2009Q3

REPORT INFORMATION
  Report Type: 
  Country: None (occurrence: None)
  Receive Date: 20090923
  Receipt Date: 20070905
  Transmission Date: 20100115
  Serious: No
  Sender: FDA-Public Use
  Company Number: US-ASTRAZENECA-2006UW27334

PATIENT
  Age: 15386 Day
  Sex: Female

DRUGS (18)
  1. SEROQUEL [Suspect]
     Dosage: 100-200 MG
     Route: 048
     Dates: start: 20041127
  2. ABILIFY [Concomitant]
  3. ZITHROMAX [Concomitant]
  4. ZOLOFT [Concomitant]
     Dosage: 50-100 MG
  5. NAPROXEN [Concomitant]
  6. AMARYL [Concomitant]
  7. HYDROCODONE [Concomitant]
     Dosage: 5-500 MG
  8. AMOXICILLIN [Concomitant]
  9. LOVASTATIN [Concomitant]
  10. SULFAMETHOXAZOLE [Concomitant]
  11. KETOROLAC TROMETHAMINE [Concomitant]
  12. WELLBUTRIN [Concomitant]
  13. ACETAMINOPHEN [Concomitant]
  14. CYCLOBENZAPRINE [Concomitant]
  15. DEPAKOTE [Concomitant]
  16. CITALOPRAM [Concomitant]
  17. AMBIEN [Concomitant]
  18. METFORMIN HCL [Concomitant]

REACTIONS (2)
  - DEPRESSION [None]
  - IRRITABILITY [None]
